FAERS Safety Report 9745592 (Version 2)
Quarter: 2014Q1

REPORT INFORMATION
  Report Type: Spontaneous
  Country: US (occurrence: US)
  Receive Date: 20131211
  Receipt Date: 20140207
  Transmission Date: 20141002
  Serious: No
  Sender: FDA-Public Use
  Company Number: US-PFIZER INC-2013349264

PATIENT
  Age: 77 Year
  Sex: Male

DRUGS (1)
  1. ZYVOX [Suspect]
     Indication: INFECTION
     Dosage: UNK
     Route: 042

REACTIONS (5)
  - Gait disturbance [Unknown]
  - Amnesia [Unknown]
  - Feeding disorder [Unknown]
  - Movement disorder [Unknown]
  - Bedridden [Unknown]
